FAERS Safety Report 6377170-1 (Version None)
Quarter: 2009Q3

REPORT INFORMATION
  Report Type: 
  Country: None (occurrence: None)
  Receive Date: 20090925
  Receipt Date: 20090921
  Transmission Date: 20100115
  Serious: Yes (Hospitalization)
  Sender: FDA-Public Use
  Company Number: B0593308A

PATIENT
  Age: 46 Year
  Sex: Female
  Weight: 72 kg

DRUGS (3)
  1. ALLI [Suspect]
     Indication: WEIGHT CONTROL
     Dosage: 3CAP PER DAY
     Route: 065
     Dates: start: 20090728, end: 20090731
  2. TERALITHE [Concomitant]
     Indication: DEPRESSION
     Route: 065
  3. DEPAKENE [Concomitant]
     Indication: DEPRESSION
     Route: 065

REACTIONS (4)
  - ANXIETY [None]
  - DEPRESSION [None]
  - DRUG INTERACTION [None]
  - SUICIDAL IDEATION [None]
